FAERS Safety Report 9209001 (Version 1)
Quarter: 2013Q2

REPORT INFORMATION
  Report Type: Spontaneous
  Country: US (occurrence: None)
  Receive Date: 20130404
  Receipt Date: 20130404
  Transmission Date: 20140414
  Serious: Yes (Life-Threatening)
  Sender: FDA-Public Use
  Company Number: None

PATIENT
  Age: 52 Year
  Sex: Female
  Weight: 120 kg

DRUGS (9)
  1. WARFARIN [Suspect]
     Indication: DEEP VEIN THROMBOSIS
     Dosage: 6MG   M, W, F  PO
     Route: 048
  2. WARFARIN [Suspect]
     Dosage: 3MG  T, TH  PO
     Route: 048
  3. ALLOPURINOL [Concomitant]
  4. COLCHICINE [Concomitant]
  5. CYCLOBENZAPRINE [Concomitant]
  6. LUNESTA [Concomitant]
  7. METOPROLOL [Concomitant]
  8. K-DUR [Concomitant]
  9. SIMVASTATIN [Concomitant]

REACTIONS (4)
  - Asthenia [None]
  - Dizziness [None]
  - Dyspnoea [None]
  - International normalised ratio increased [None]
